FAERS Safety Report 6580099-7 (Version None)
Quarter: 2010Q1

REPORT INFORMATION
  Report Type: 
  Country: None (occurrence: None)
  Receive Date: 20100212
  Receipt Date: 20100205
  Transmission Date: 20100710
  Serious: Yes (Other)
  Sender: FDA-Public Use
  Company Number: US-BAYER-201011344BCC

PATIENT
  Age: 79 Year
  Sex: Male

DRUGS (7)
  1. ASPIRIN [Suspect]
     Indication: DRUG USE FOR UNKNOWN INDICATION
     Route: 048
     Dates: start: 20091201
  2. PLAVIX [Suspect]
     Indication: BLOOD CHOLESTEROL INCREASED
     Dosage: TOTAL DAILY DOSE: 75 MG  UNIT DOSE: 75 MG
     Route: 048
     Dates: start: 20091201
  3. ATENOLOL [Concomitant]
  4. VITAMIN C [Concomitant]
  5. FOLIC ACID [Concomitant]
  6. LOVASTATIN [Concomitant]
  7. LOVAZA [Concomitant]

REACTIONS (6)
  - CONTUSION [None]
  - EYE HAEMORRHAGE [None]
  - HAEMATOCHEZIA [None]
  - MEAN CELL VOLUME INCREASED [None]
  - PLATELET COUNT DECREASED [None]
  - RECTAL HAEMORRHAGE [None]
